FAERS Safety Report 7337942-3 (Version None)
Quarter: 2011Q1

REPORT INFORMATION
  Report Type: 
  Country: None (occurrence: None)
  Receive Date: 20110308
  Receipt Date: 20110302
  Transmission Date: 20110831
  Serious: Yes (Life-Threatening)
  Sender: FDA-Public Use
  Company Number: JP-JNJFOC-20101000040

PATIENT
  Sex: Female
  Weight: 39 kg

DRUGS (12)
  1. RAMELTEON [Concomitant]
     Dosage: 1 DF
     Route: 048
  2. LAXOBERON [Concomitant]
     Route: 048
  3. MAGMITT [Concomitant]
     Dosage: 4 DF
     Route: 048
  4. DOXIL [Suspect]
     Indication: OVARIAN CANCER
     Route: 042
  5. MAGMITT [Concomitant]
     Dosage: 3 DF
     Route: 048
  6. KYTRIL [Concomitant]
     Route: 041
  7. DOXIL [Suspect]
     Route: 042
  8. KYTRIL [Concomitant]
     Route: 041
  9. DOXIL [Suspect]
     Dosage: PATIENT HAD 2 CYCLES.
     Route: 042
  10. MAGMITT [Concomitant]
     Dosage: 4 DF
     Route: 048
  11. AMPICILLIN [Concomitant]
     Dosage: 4 DF
     Route: 048
  12. RAMELTEON [Concomitant]
     Dosage: 1 DF
     Route: 048

REACTIONS (2)
  - MASTITIS [None]
  - PROCEDURAL SITE REACTION [None]
